FAERS Safety Report 10975280 (Version 1)
Quarter: 2015Q2

REPORT INFORMATION
  Report Type: Spontaneous
  Country: DE (occurrence: JP)
  Receive Date: 20150401
  Receipt Date: 20150401
  Transmission Date: 20150821
  Serious: Yes (Disabling)
  Sender: FDA-Public Use
  Company Number: JP-FRI-1000075549

PATIENT
  Age: 86 Year
  Sex: Female

DRUGS (13)
  1. BAYASPIRIN [Concomitant]
     Active Substance: ASPIRIN
     Dates: end: 20141211
  2. MEMANTINE [Suspect]
     Active Substance: MEMANTINE
     Dosage: 10 MG
     Route: 048
     Dates: start: 20141002, end: 20150108
  3. OLMETEC [Concomitant]
     Active Substance: OLMESARTAN MEDOXOMIL
     Dates: end: 20141211
  4. NITRODERM [Concomitant]
     Active Substance: NITROGLYCERIN
  5. MEMANTINE [Suspect]
     Active Substance: MEMANTINE
     Indication: DEMENTIA ALZHEIMER^S TYPE
     Dosage: 5 MG
     Route: 048
     Dates: start: 20140918, end: 20141001
  6. NEXIUM [Concomitant]
     Active Substance: ESOMEPRAZOLE MAGNESIUM
  7. PLETAAL [Concomitant]
     Active Substance: CILOSTAZOL
     Dates: start: 20141212
  8. PLAVIX [Concomitant]
     Active Substance: CLOPIDOGREL BISULFATE
  9. NORVASC [Concomitant]
     Active Substance: AMLODIPINE BESYLATE
  10. ZETIA [Concomitant]
     Active Substance: EZETIMIBE
     Dates: end: 20141225
  11. RENIVACE [Concomitant]
     Active Substance: ENALAPRIL
     Dates: start: 20141212
  12. DOGMATYL [Concomitant]
     Active Substance: SULPIRIDE
     Dates: start: 20140821
  13. CRESTOR [Concomitant]
     Active Substance: ROSUVASTATIN CALCIUM
     Dates: start: 20141226

REACTIONS (2)
  - Blood pressure increased [Recovered/Resolved]
  - Bradykinesia [Recovered/Resolved with Sequelae]

NARRATIVE: CASE EVENT DATE: 201410
